FAERS Safety Report 13623708 (Version 2)
Quarter: 2021Q1

REPORT INFORMATION
  Report Type: Spontaneous
  Country: US (occurrence: US)
  Receive Date: 20170607
  Receipt Date: 20210217
  Transmission Date: 20210419
  Serious: Yes (Disabling, Other)
  Sender: FDA-Public Use
  Company Number: US-PURDUE-USA-2016-0134352

PATIENT
  Sex: Female

DRUGS (8)
  1. OXYCODONE HYDROCHLORIDE (SIMILAR TO NDA 22?272) [Suspect]
     Active Substance: OXYCODONE HYDROCHLORIDE
     Indication: PAIN MANAGEMENT
     Dosage: 10?20 MG, DAILY
     Route: 048
  2. BUTRANS [Suspect]
     Active Substance: BUPRENORPHINE
     Dosage: 5 MCG/HR, WEEKLY
     Route: 062
     Dates: start: 2016, end: 2016
  3. BUTRANS [Suspect]
     Active Substance: BUPRENORPHINE
     Indication: PAIN
     Dosage: 20 MCG/HR, WEEKLY
     Route: 062
     Dates: start: 201610
  4. BUTRANS [Suspect]
     Active Substance: BUPRENORPHINE
     Dosage: 10 MCG/HR, WEEKLY
     Route: 062
     Dates: start: 2016, end: 2016
  5. BUTRANS [Suspect]
     Active Substance: BUPRENORPHINE
     Dosage: 15 MCG/HR, WEEKLY
     Route: 062
     Dates: start: 2016, end: 201610
  6. BUTRANS [Suspect]
     Active Substance: BUPRENORPHINE
     Dosage: 7.5 MCG/HR, WEEKLY
     Route: 062
     Dates: start: 2016, end: 2016
  7. XANAX [Concomitant]
     Active Substance: ALPRAZOLAM
     Indication: PAIN MANAGEMENT
     Dosage: 1?2 MG, DAILY
     Route: 048
  8. BUTRANS [Suspect]
     Active Substance: BUPRENORPHINE
     Dosage: 10 MCG/HR, WEEKLY
     Route: 062
     Dates: start: 201604, end: 2016

REACTIONS (12)
  - Drug dependence [Unknown]
  - Therapeutic product effect increased [Recovered/Resolved]
  - Dizziness [Recovered/Resolved]
  - Haemorrhoids [Unknown]
  - Product adhesion issue [Not Recovered/Not Resolved]
  - Mood altered [Unknown]
  - Systemic lupus erythematosus [Unknown]
  - Respiratory disorder [Unknown]
  - Inadequate analgesia [Not Recovered/Not Resolved]
  - Impaired driving ability [Unknown]
  - Drug withdrawal syndrome [Unknown]
  - Major depression [Unknown]

NARRATIVE: CASE EVENT DATE: 2016
